FAERS Safety Report 9906045 (Version 1)
Quarter: 2014Q1

REPORT INFORMATION
  Report Type: Spontaneous
  Country: US (occurrence: None)
  Receive Date: 20140212
  Receipt Date: 20140212
  Transmission Date: 20141002
  Serious: Yes (Hospitalization)
  Sender: FDA-Public Use
  Company Number: None

PATIENT
  Age: 48 Year
  Sex: Male

DRUGS (1)
  1. DEPOTESTOSTERONE [Suspect]

REACTIONS (5)
  - Local swelling [None]
  - Joint swelling [None]
  - Pain in extremity [None]
  - Arthralgia [None]
  - Thrombosis [None]
